FAERS Safety Report 9660267 (Version 1)
Quarter: 2013Q4

REPORT INFORMATION
  Report Type: Spontaneous
  Country: US (occurrence: US)
  Receive Date: 20131031
  Receipt Date: 20131031
  Transmission Date: 20140711
  Serious: No
  Sender: FDA-Public Use
  Company Number: US-BAYER-2013-132726

PATIENT
  Age: 67 Year
  Sex: Female
  Weight: 72.56 kg

DRUGS (2)
  1. ALEVE CAPLET [Suspect]
     Indication: JOINT SWELLING
     Dosage: 1 DF, BID
     Route: 048
     Dates: start: 20131012
  2. OMEPRAZOLE [Concomitant]

REACTIONS (2)
  - Therapeutic response unexpected [None]
  - Incorrect drug administration duration [None]
